FAERS Safety Report 13886031 (Version 2)
Quarter: 2017Q3

REPORT INFORMATION
  Report Type: Report from Study
  Country: JP (occurrence: JP)
  Receive Date: 20170821
  Receipt Date: 20170929
  Transmission Date: 20171127
  Serious: Yes (Death)
  Sender: FDA-Public Use
  Company Number: JP-EISAI MEDICAL RESEARCH-EC-2016-020895

PATIENT
  Age: 74 Year
  Sex: Female
  Weight: 32 kg

DRUGS (8)
  1. AMLODIPINE [Concomitant]
     Active Substance: AMLODIPINE BESYLATE
  2. TRIAZOLAM. [Concomitant]
     Active Substance: TRIAZOLAM
  3. LECICARBON [Concomitant]
     Active Substance: SODIUM BICARBONATE\SODIUM PHOSPHATE, MONOBASIC
  4. ALFAROL [Concomitant]
     Active Substance: ALFACALCIDOL
  5. LENVIMA [Suspect]
     Active Substance: LENVATINIB
     Indication: ANAPLASTIC THYROID CANCER
     Route: 048
     Dates: start: 20150730, end: 20150814
  6. THYRADIN S [Concomitant]
     Active Substance: LEVOTHYROXINE SODIUM
  7. OLMETEC [Concomitant]
     Active Substance: OLMESARTAN MEDOXOMIL
  8. AZUNOL [Concomitant]
     Active Substance: SODIUM GUALENATE

REACTIONS (1)
  - Malignant neoplasm progression [Fatal]

NARRATIVE: CASE EVENT DATE: 20150828
